FAERS Safety Report 9656590 (Version 1)
Quarter: 2013Q4

REPORT INFORMATION
  Report Type: Spontaneous
  Country: FR (occurrence: FR)
  Receive Date: 20131030
  Receipt Date: 20131030
  Transmission Date: 20140711
  Serious: Yes (Hospitalization)
  Sender: FDA-Public Use
  Company Number: FR-MERCK-1310FRA010603

PATIENT
  Age: 79 Year
  Sex: Female

DRUGS (3)
  1. NORSET [Suspect]
     Dosage: 30 MG, QD
  2. XARELTO [Suspect]
     Indication: THROMBOSIS PROPHYLAXIS
     Dosage: 1 DF, QD
     Route: 048
     Dates: start: 20130524, end: 20130617
  3. KARDEGIC [Suspect]
     Indication: THROMBOSIS PROPHYLAXIS
     Dosage: 1 DF, QD
     Dates: end: 20130617

REACTIONS (1)
  - Rectal haemorrhage [Recovered/Resolved]
